FAERS Safety Report 16423031 (Version 1)
Quarter: 2019Q2

REPORT INFORMATION
  Report Type: Spontaneous
  Country: US (occurrence: US)
  Receive Date: 20190612
  Receipt Date: 20190612
  Transmission Date: 20190711
  Serious: Yes (Hospitalization)
  Sender: FDA-Public Use
  Company Number: US-SHIRE-US201916440

PATIENT
  Sex: Female
  Weight: 54.42 kg

DRUGS (1)
  1. GATTEX [Suspect]
     Active Substance: TEDUGLUTIDE\WATER
     Indication: SHORT-BOWEL SYNDROME
     Dosage: 0.28 MILLILITER (5 TIMES A WEEK)
     Route: 050

REACTIONS (2)
  - Hernia [Unknown]
  - Nausea [Recovering/Resolving]
